FAERS Safety Report 11791833 (Version 2)
Quarter: 2016Q3

REPORT INFORMATION
  Report Type: Report from Study
  Country: BR (occurrence: BR)
  Receive Date: 20151201
  Receipt Date: 20160724
  Transmission Date: 20161109
  Serious: Yes (Other)
  Sender: FDA-Public Use
  Company Number: PHHY2015BR156140

PATIENT
  Sex: Male
  Weight: 90 kg

DRUGS (3)
  1. OMEPRAZOLE. [Concomitant]
     Active Substance: OMEPRAZOLE
     Indication: PRODUCT USED FOR UNKNOWN INDICATION
     Dosage: 1 DF, QD
     Route: 048
     Dates: start: 2011
  2. SANDOSTATIN LAR DEPOT [Suspect]
     Active Substance: OCTREOTIDE ACETATE
     Indication: ACROMEGALY
     Dosage: 30 MG, EVERY 20 DAYS
     Route: 030
     Dates: start: 2011
  3. CABERGOLINE. [Concomitant]
     Active Substance: CABERGOLINE
     Indication: ACROMEGALY
     Dosage: 1 DF, QD
     Route: 048
     Dates: start: 2011

REACTIONS (13)
  - Speech disorder [Recovering/Resolving]
  - Agitation [Recovering/Resolving]
  - Hydrocephalus [Recovered/Resolved]
  - Food aversion [Not Recovered/Not Resolved]
  - Disorientation [Recovering/Resolving]
  - Crying [Unknown]
  - Patient-device incompatibility [Recovered/Resolved]
  - Aggression [Recovering/Resolving]
  - Seizure [Unknown]
  - Mood altered [Unknown]
  - Retching [Unknown]
  - Product use issue [Unknown]
  - Memory impairment [Recovering/Resolving]

NARRATIVE: CASE EVENT DATE: 2011
